FAERS Safety Report 6261229-3 (Version None)
Quarter: 2009Q3

REPORT INFORMATION
  Report Type: 
  Country: None (occurrence: None)
  Receive Date: 20090709
  Receipt Date: 20090626
  Transmission Date: 20100115
  Serious: Yes (Hospitalization)
  Sender: FDA-Public Use
  Company Number: IT-PFIZER INC-2009230658

PATIENT
  Age: 23 Year

DRUGS (4)
  1. ZELDOX [Suspect]
     Indication: PSYCHOTIC DISORDER
     Dosage: 60 MG, 2X/DAY
     Dates: start: 20090528, end: 20090601
  2. ZELDOX [Suspect]
     Dosage: UNK
  3. ABILIFY [Suspect]
     Indication: PSYCHOTIC DISORDER
     Dosage: 5 MG, 1X/DAY
     Route: 048
     Dates: start: 20090605, end: 20090607
  4. SERENASE [Concomitant]

REACTIONS (6)
  - DYSPHAGIA [None]
  - HYPERHIDROSIS [None]
  - MUSCULOSKELETAL STIFFNESS [None]
  - PYREXIA [None]
  - STUPOR [None]
  - URINARY INCONTINENCE [None]
